FAERS Safety Report 7737211-3 (Version None)
Quarter: 2011Q3

REPORT INFORMATION
  Report Type: 
  Country: None (occurrence: None)
  Receive Date: 20110902
  Receipt Date: 20110822
  Transmission Date: 20111222
  Serious: Yes (Other)
  Sender: FDA-Public Use
  Company Number: 2011MA012386

PATIENT
  Age: 16 Month

DRUGS (1)
  1. TOPOTECAN [Suspect]
     Indication: RETINOBLASTOMA
     Dosage: 4.62 MG/M2 IO
     Route: 031

REACTIONS (2)
  - NEUTROPHIL COUNT DECREASED [None]
  - CONJUNCTIVAL HYPERAEMIA [None]
